FAERS Safety Report 10229793 (Version 1)
Quarter: 2014Q2

REPORT INFORMATION
  Report Type: Spontaneous
  Country: US (occurrence: None)
  Receive Date: 20140610
  Receipt Date: 20140610
  Transmission Date: 20141212
  Serious: Yes (Other)
  Sender: FDA-Public Use
  Company Number: None

PATIENT
  Sex: Female

DRUGS (2)
  1. DAYTRANA [Suspect]
     Indication: ATTENTION DEFICIT/HYPERACTIVITY DISORDER
  2. DAYTRANA [Suspect]
     Indication: NEUROFIBROMATOSIS

REACTIONS (4)
  - Erythema [None]
  - Pruritus [None]
  - Tic [None]
  - Condition aggravated [None]
